FAERS Safety Report 7894929-X (Version None)
Quarter: 2011Q4

REPORT INFORMATION
  Report Type: 
  Country: None (occurrence: None)
  Receive Date: 20111102
  Receipt Date: 20111027
  Transmission Date: 20120403
  Serious: Yes (Other)
  Sender: FDA-Public Use
  Company Number: A0950824A

PATIENT

DRUGS (1)
  1. ASPIRIN + CAFFEINE + SALICYLAMIDE (FORMULATION UNKNOWN) (ASPIRIN+CAFFE [Suspect]
     Indication: PRODUCT USED FOR UNKNOWN INDICATION
     Dosage: INHALED
     Route: 055

REACTIONS (2)
  - INTENTIONAL DRUG MISUSE [None]
  - WRONG TECHNIQUE IN DRUG USAGE PROCESS [None]
